FAERS Safety Report 5887816-X (Version None)
Quarter: 2008Q3

REPORT INFORMATION
  Report Type: 
  Country: None (occurrence: None)
  Receive Date: 20080916
  Receipt Date: 20080910
  Transmission Date: 20090109
  Serious: Yes (Hospitalization, Other)
  Sender: FDA-Public Use
  Company Number: 2008AL005453

PATIENT
  Age: 67 Year
  Sex: Female
  Weight: 72.5755 kg

DRUGS (6)
  1. DIGOXIN [Suspect]
     Indication: CARDIAC DISORDER
     Dosage: 0.125MG, DAILY, PO
     Route: 048
     Dates: start: 20040101, end: 20080301
  2. COREG [Concomitant]
  3. LEXAPRO [Concomitant]
  4. FUROSEMIDE [Concomitant]
  5. ASPIRIN [Concomitant]
  6. OXYGEN [Concomitant]

REACTIONS (6)
  - ANOREXIA [None]
  - ASTHENIA [None]
  - CONCUSSION [None]
  - FALL [None]
  - HYPOTENSION [None]
  - WEIGHT DECREASED [None]
